FAERS Safety Report 14012656 (Version 1)
Quarter: 2017Q3

REPORT INFORMATION
  Report Type: Spontaneous
  Country: US (occurrence: US)
  Receive Date: 20170926
  Receipt Date: 20170926
  Transmission Date: 20171128
  Serious: No
  Sender: FDA-Public Use
  Company Number: US-DEPOMED, INC.-US-2017DEP000525

PATIENT

DRUGS (3)
  1. GRALISE [Suspect]
     Active Substance: GABAPENTIN
     Indication: SCIATICA
     Dosage: UNK
     Route: 048
     Dates: start: 2016
  2. GRALISE [Suspect]
     Active Substance: GABAPENTIN
     Dosage: 600 MG, QD AT 1900 WITH A MEAL
     Route: 048
     Dates: start: 201610
  3. GRALISE [Suspect]
     Active Substance: GABAPENTIN
     Indication: BACK PAIN
     Dosage: 600 MG, QD AT 1900 WITH MEALS
     Route: 048
     Dates: start: 2013

REACTIONS (7)
  - Hypertension [Not Recovered/Not Resolved]
  - Paranoia [Not Recovered/Not Resolved]
  - Expired product administered [Not Recovered/Not Resolved]
  - Fear [Not Recovered/Not Resolved]
  - Drug titration error [Not Recovered/Not Resolved]
  - Product use in unapproved indication [Not Recovered/Not Resolved]
  - Drug effect decreased [Not Recovered/Not Resolved]

NARRATIVE: CASE EVENT DATE: 2013
